FAERS Safety Report 12793828 (Version 2)
Quarter: 2017Q2

REPORT INFORMATION
  Report Type: Spontaneous
  Country: US (occurrence: US)
  Receive Date: 20160929
  Receipt Date: 20170509
  Transmission Date: 20170830
  Serious: No
  Sender: FDA-Public Use
  Company Number: US-JAZZ-2016-US-011834

PATIENT
  Sex: Male

DRUGS (31)
  1. MS CONTIN [Concomitant]
     Active Substance: MORPHINE SULFATE
  2. TRIAZOLAM. [Concomitant]
     Active Substance: TRIAZOLAM
  3. BACLOFEN. [Concomitant]
     Active Substance: BACLOFEN
  4. CELEXA [Concomitant]
     Active Substance: CITALOPRAM HYDROBROMIDE
  5. DEPLIN [Concomitant]
     Active Substance: LEVOMEFOLATE CALCIUM
  6. PREVIDENT [Concomitant]
     Active Substance: SODIUM FLUORIDE
  7. HALCION [Concomitant]
     Active Substance: TRIAZOLAM
  8. TRAZODONE HYDROCHLORIDE. [Concomitant]
     Active Substance: TRAZODONE HYDROCHLORIDE
  9. SIMVASTATIN. [Concomitant]
     Active Substance: SIMVASTATIN
  10. XYREM [Suspect]
     Active Substance: SODIUM OXYBATE
     Indication: INSOMNIA
     Dosage: 2.5 G, BID
     Route: 048
     Dates: start: 201002, end: 201002
  11. XYREM [Suspect]
     Active Substance: SODIUM OXYBATE
     Dosage: DOSE ADJUSTMENTS
     Route: 048
     Dates: start: 201002, end: 201403
  12. DOXYCYCLINE HYCLATE. [Concomitant]
     Active Substance: DOXYCYCLINE HYCLATE
  13. ESCITALOPRAM [Concomitant]
     Active Substance: ESCITALOPRAM OXALATE
  14. TRICOR [Concomitant]
     Active Substance: FENOFIBRATE
  15. NORCO [Concomitant]
     Active Substance: ACETAMINOPHEN\HYDROCODONE BITARTRATE
  16. AMITIZA [Concomitant]
     Active Substance: LUBIPROSTONE
  17. FUROSEMIDE. [Concomitant]
     Active Substance: FUROSEMIDE
  18. MORPHINE SULF [Concomitant]
     Active Substance: MORPHINE SULFATE
  19. LORAZEPAM. [Concomitant]
     Active Substance: LORAZEPAM
  20. MARIJUANA [Concomitant]
     Active Substance: CANNABIS SATIVA SUBSP. INDICA TOP
  21. XYREM [Suspect]
     Active Substance: SODIUM OXYBATE
     Dosage: 4.5 G, TID
     Route: 048
     Dates: start: 201403
  22. ANDROGEL [Concomitant]
     Active Substance: TESTOSTERONE
  23. CIALIS [Concomitant]
     Active Substance: TADALAFIL
  24. LIDOCAINE AND PRILOCAINE [Concomitant]
     Active Substance: LIDOCAINE\PRILOCAINE
  25. MUPIROCIN. [Concomitant]
     Active Substance: MUPIROCIN
  26. MARINOL [Concomitant]
     Active Substance: DRONABINOL
  27. DEXILANT [Concomitant]
     Active Substance: DEXLANSOPRAZOLE
  28. EVZIO [Concomitant]
     Active Substance: NALOXONE HYDROCHLORIDE
  29. ATENOLOL. [Concomitant]
     Active Substance: ATENOLOL
  30. LISINOPRIL. [Concomitant]
     Active Substance: LISINOPRIL
  31. FLEXERIL [Concomitant]
     Active Substance: CYCLOBENZAPRINE HYDROCHLORIDE

REACTIONS (6)
  - Onychomycosis [Recovered/Resolved]
  - Unevaluable event [Not Recovered/Not Resolved]
  - Condition aggravated [Not Recovered/Not Resolved]
  - Foot deformity [Not Recovered/Not Resolved]
  - Vasculitis [Unknown]
  - Spider vein [Unknown]
